FAERS Safety Report 4375662-8 (Version None)
Quarter: 2004Q2

REPORT INFORMATION
  Report Type: 
  Country: None (occurrence: None)
  Receive Date: 20040610
  Receipt Date: 20040602
  Transmission Date: 20050107
  Serious: Yes (Life-Threatening, Hospitalization)
  Sender: FDA-Public Use
  Company Number: 11866670

PATIENT
  Age: 61 Year
  Sex: Male

DRUGS (3)
  1. COMBIVIR [Suspect]
     Indication: HIV INFECTION
     Route: 048
     Dates: start: 20020212, end: 20020516
  2. DPC 083 [Suspect]
     Indication: HIV INFECTION
     Dosage: 50MG PER DAY
     Route: 048
     Dates: start: 20020212, end: 20020516
  3. ROKITAMYCIN [Concomitant]
     Dates: start: 20020509, end: 20020515

REACTIONS (3)
  - ANAEMIA [None]
  - ANAL SPHINCTER ATONY [None]
  - LOSS OF CONSCIOUSNESS [None]
